FAERS Safety Report 18212210 (Version 1)
Quarter: 2020Q3

REPORT INFORMATION
  Report Type: Spontaneous
  Country: JP (occurrence: JP)
  Receive Date: 20200831
  Receipt Date: 20200831
  Transmission Date: 20201103
  Serious: Yes (Other)
  Sender: FDA-Public Use
  Company Number: JP-PFIZER INC-2020332849

PATIENT
  Age: 74 Year
  Sex: Female

DRUGS (7)
  1. MEROPENEM. [Concomitant]
     Active Substance: MEROPENEM
     Indication: INTERSTITIAL LUNG DISEASE
     Dosage: UNK
  2. PREDNISOLONE. [Suspect]
     Active Substance: PREDNISOLONE
     Indication: INTERSTITIAL LUNG DISEASE
     Dosage: 40 MG, DAILY
  3. PREDNISOLONE. [Suspect]
     Active Substance: PREDNISOLONE
     Dosage: UNK (THEN GRADUALLY DECREASED AS THE RESPIRATORY CONDITION IMPROVED)
  4. OXYGEN. [Concomitant]
     Active Substance: OXYGEN
     Indication: INTERSTITIAL LUNG DISEASE
     Dosage: UNK ((2 L/MIN)
  5. OXYGEN. [Concomitant]
     Active Substance: OXYGEN
     Dosage: UNK (0.5?1 L/MIN)
  6. METHYLPREDNISOLONE. [Suspect]
     Active Substance: METHYLPREDNISOLONE
     Indication: INTERSTITIAL LUNG DISEASE
     Dosage: 1000 MG, DAILY (HIGH?DOSE, STEROID PULSE)
     Route: 042
  7. SIVELESTAT SODIUM [Concomitant]
     Active Substance: SIVELESTAT SODIUM
     Indication: INTERSTITIAL LUNG DISEASE
     Dosage: 4.8 MG/KG

REACTIONS (1)
  - Pneumonia bacterial [Recovering/Resolving]
